FAERS Safety Report 19820215 (Version 1)
Quarter: 2021Q3

REPORT INFORMATION
  Report Type: Spontaneous
  Country: US (occurrence: US)
  Receive Date: 20210910
  Receipt Date: 20210910
  Transmission Date: 20211014
  Serious: Yes (Hospitalization)
  Sender: FDA-Public Use
  Company Number: None

PATIENT
  Age: 50 Year
  Sex: Male
  Weight: 78.75 kg

DRUGS (1)
  1. REGEN?COV [Suspect]
     Active Substance: CASIRIVIMAB\IMDEVIMAB
     Indication: COVID-19
     Dosage: ?          QUANTITY:4 INJECTION(S);OTHER FREQUENCY:ONE TIME;?
     Route: 058
     Dates: start: 20210909, end: 20210909

REACTIONS (8)
  - Pyrexia [None]
  - Chills [None]
  - Headache [None]
  - Oxygen saturation decreased [None]
  - Blood pressure increased [None]
  - Vomiting [None]
  - Pain [None]
  - Dyspnoea [None]

NARRATIVE: CASE EVENT DATE: 20210909
